FAERS Safety Report 8491480 (Version 3)
Quarter: 2012Q4

REPORT INFORMATION
  Report Type: 
  Country: US (occurrence: US)
  Receive Date: 20120403
  Receipt Date: 20121029
  Transmission Date: 20130627
  Serious: Yes (Hospitalization)
  Sender: FDA-Public Use
  Company Number: US-BAYER-2012-030025

PATIENT
  Age: 39 Year
  Sex: Female
  Weight: 98.6 kg

DRUGS (12)
  1. YASMIN [Suspect]
     Dosage: UNK
     Dates: start: 200901, end: 200902
  2. NORVASC [Concomitant]
     Route: 048
  3. FERROUS SULFATE [Concomitant]
     Route: 048
  4. TYLENOL [Concomitant]
  5. ALLERGY MEDICATION [Concomitant]
  6. FEXOFENADINE HYDROCHLORIDE [Concomitant]
     Indication: MULTIPLE ALLERGIES
     Dosage: 180 mg, daily
     Route: 048
     Dates: start: 20071220, end: 20100114
  7. NAPROXEN [Concomitant]
     Indication: ARTHRITIS
     Dosage: 500 mg, HS
     Route: 048
     Dates: start: 20070808, end: 20091124
  8. PRENATAL [VIT C,CA+,CU+,B12,D2,FE+,MN+,B3,KI,B6,RETINOL,B2,B1] [Concomitant]
     Indication: ENERGY DECREASED
     Dosage: one daily
     Dates: start: 20061002, end: 20100306
  9. AMLODIPINE BESYLATE [Concomitant]
     Indication: BLOOD PRESSURE HIGH
     Dosage: 5 mg, daily
     Route: 048
     Dates: start: 20090115, end: 20100412
  10. NAPROSYN [Concomitant]
     Dosage: UNK
     Dates: start: 200404
  11. BLOOD PRESSURE MEDS (NOS) [Concomitant]
     Dosage: UNK
     Dates: start: 200809
  12. ANTIBIOTICS [Concomitant]
     Dosage: as necessary.

REACTIONS (11)
  - Acute myocardial infarction [None]
  - Pulmonary embolism [None]
  - Pain [None]
  - Injury [None]
  - General physical health deterioration [None]
  - Anxiety [None]
  - Emotional distress [None]
  - Dyspnoea [None]
  - Muscular weakness [None]
  - Chest pain [None]
  - Fatigue [None]
